FAERS Safety Report 12724354 (Version 1)
Quarter: 2016Q3

REPORT INFORMATION
  Report Type: Spontaneous
  Country: US (occurrence: US)
  Receive Date: 20160907
  Receipt Date: 20160907
  Transmission Date: 20161109
  Serious: Yes (Hospitalization)
  Sender: FDA-Public Use
  Company Number: None

PATIENT
  Age: 34 Year
  Sex: Female
  Weight: 71.4 kg

DRUGS (1)
  1. NALTREXONE [Suspect]
     Active Substance: NALTREXONE
     Indication: ALCOHOL USE
     Dates: start: 20160523, end: 20160523

REACTIONS (3)
  - Injection site induration [None]
  - Erythema multiforme [None]
  - Discomfort [None]

NARRATIVE: CASE EVENT DATE: 20160511
